FAERS Safety Report 9468659 (Version 1)
Quarter: 2013Q3

REPORT INFORMATION
  Report Type: Spontaneous
  Country: US (occurrence: None)
  Receive Date: 20130814
  Receipt Date: 20130814
  Transmission Date: 20140515
  Serious: Yes (Hospitalization)
  Sender: FDA-Public Use
  Company Number: QSC-2013-0257

PATIENT
  Sex: Male

DRUGS (8)
  1. H.P. ACTHAL GEL [Suspect]
     Indication: GLOMERULONEPHRITIS CHRONIC
     Dosage: 80 UNITS, BID, SUBCUTANEOUS
     Route: 058
     Dates: start: 20130521
  2. ULTRAM [Concomitant]
  3. TUMS (CALCIUM CARBONATE) [Concomitant]
  4. NORVASC (AMLODIPINE BESILATE) [Concomitant]
  5. CRESTOR [Concomitant]
  6. COLCRYS (COLCHICINE) [Concomitant]
  7. CALCITROL (CALCITRIOL) [Concomitant]
  8. ALLOPURINOL [Concomitant]

REACTIONS (3)
  - Atrial fibrillation [None]
  - Chest pain [None]
  - Heart rate increased [None]
